FAERS Safety Report 6068305-9 (Version None)
Quarter: 2009Q1

REPORT INFORMATION
  Report Type: 
  Country: None (occurrence: None)
  Receive Date: 20090206
  Receipt Date: 20090203
  Transmission Date: 20090719
  Serious: Yes (Death, Other)
  Sender: FDA-Public Use
  Company Number: PHBS2009US00687

PATIENT
  Age: 41 Year
  Weight: 72 kg

DRUGS (5)
  1. CYCLOSPORINE [Suspect]
     Indication: CORD BLOOD TRANSPLANT THERAPY
     Dosage: UNK
  2. MYCOPHENOLATE MOFETIL [Suspect]
     Dosage: UNK
  3. CYCLOPHOSPHAMIDE [Concomitant]
     Dosage: 60 MG/KG, QD
     Route: 042
  4. FLUDARABINE PHOSPHATE [Concomitant]
     Dosage: 25 MG/M2, QD
     Route: 042
  5. IRRADIATION [Concomitant]
     Dosage: 165 CGY, BID

REACTIONS (2)
  - ACUTE GRAFT VERSUS HOST DISEASE [None]
  - FUNGAL INFECTION [None]
